FAERS Safety Report 9794628 (Version 1)
Quarter: 2014Q1

REPORT INFORMATION
  Report Type: Spontaneous
  Country: US (occurrence: US)
  Receive Date: 20140102
  Receipt Date: 20140102
  Transmission Date: 20141002
  Serious: Yes (Hospitalization)
  Sender: FDA-Public Use
  Company Number: US-GLAXOSMITHKLINE-A1055038A

PATIENT
  Age: 76 Year
  Sex: Male

DRUGS (1)
  1. HYCAMTIN [Suspect]
     Indication: RENAL CANCER
     Dosage: 4.5MG PER DAY
     Route: 065
     Dates: start: 20131210, end: 20131226

REACTIONS (2)
  - Investigation [Not Recovered/Not Resolved]
  - Hospice care [Not Recovered/Not Resolved]
